FAERS Safety Report 6303794-3 (Version None)
Quarter: 2009Q3

REPORT INFORMATION
  Report Type: 
  Country: None (occurrence: None)
  Receive Date: 20090805
  Receipt Date: 20090728
  Transmission Date: 20100115
  Serious: Yes (Hospitalization)
  Sender: FDA-Public Use
  Company Number: GXKR2009GB08560

PATIENT
  Age: 52 Year
  Sex: Female
  Weight: 86.9 kg

DRUGS (4)
  1. METHYLENE BLUE          (METHYLENE BLUE) UNKNOWN [Suspect]
     Indication: INVESTIGATION
     Dosage: 7.5 MG/KG (TOTAL DOSE 650 MG), INFUSION
  2. VENLAFAXINE HCL [Suspect]
  3. FERROUS SULPHATE         (FERROUS SULFATE) [Concomitant]
  4. MEBEVERINE       (MEBEVERINE) [Concomitant]

REACTIONS (8)
  - APHASIA [None]
  - BLOOD GLUCOSE INCREASED [None]
  - CONFUSIONAL STATE [None]
  - DELAYED RECOVERY FROM ANAESTHESIA [None]
  - DISINHIBITION [None]
  - DRUG INTERACTION [None]
  - NYSTAGMUS [None]
  - WHITE BLOOD CELL COUNT INCREASED [None]
